FAERS Safety Report 5408243-5 (Version None)
Quarter: 2007Q3

REPORT INFORMATION
  Report Type: 
  Country: None (occurrence: None)
  Receive Date: 20070808
  Receipt Date: 20070806
  Transmission Date: 20080115
  Serious: Yes (Other)
  Sender: FDA-Public Use
  Company Number: PT-BRISTOL-MYERS SQUIBB COMPANY-13750351

PATIENT
  Age: 70 Year
  Sex: Male

DRUGS (5)
  1. APROVEL TABS 300 MG [Suspect]
     Indication: HYPERTENSION
     Dosage: THERAPY WITH IRBESARTAN 150 MG TABLETS WAS STARTED OVER 5 YEARS AGO AND STOPPED IN MAR-2007.
     Route: 048
     Dates: start: 20070301, end: 20070301
  2. NICERGOLINE [Concomitant]
     Route: 048
  3. BISOPROLOL FUMARATE [Concomitant]
     Route: 048
  4. HCTZ + AMILORIDE HCL [Concomitant]
     Dosage: HCZ-50 MG + AMILORIDE 5 MG.
     Route: 048
  5. AMLODIPINE [Concomitant]
     Route: 048

REACTIONS (4)
  - CONSTIPATION [None]
  - DIARRHOEA [None]
  - GASTROINTESTINAL DISORDER [None]
  - WHITE BLOOD CELL COUNT DECREASED [None]
